FAERS Safety Report 15753502 (Version 1)
Quarter: 2018Q4

REPORT INFORMATION
  Report Type: Report from Study
  Country: None (occurrence: CA)
  Receive Date: 20181222
  Receipt Date: 20181222
  Transmission Date: 20190205
  Serious: Yes (Hospitalization, Disabling, Other)
  Sender: FDA-Public Use
  Company Number: CA-ABBVIE-18K-028-2597714-00

PATIENT
  Sex: Female

DRUGS (1)
  1. HUMIRA [Suspect]
     Active Substance: ADALIMUMAB
     Indication: CROHN^S DISEASE
     Route: 058
     Dates: start: 20090915

REACTIONS (21)
  - Spinal osteoarthritis [Unknown]
  - Small intestinal obstruction [Unknown]
  - Joint swelling [Unknown]
  - Cow^s milk intolerance [Unknown]
  - Lactation disorder [Unknown]
  - Dyspepsia [Unknown]
  - Crohn^s disease [Unknown]
  - Sacroiliitis [Unknown]
  - Arthritis [Unknown]
  - Malaise [Unknown]
  - Irritable bowel syndrome [Unknown]
  - Ileal stenosis [Unknown]
  - Osteopenia [Not Recovered/Not Resolved]
  - Malnutrition [Unknown]
  - General physical health deterioration [Unknown]
  - Depression [Unknown]
  - Disability [Unknown]
  - Ankylosing spondylitis [Not Recovered/Not Resolved]
  - Anxiety [Unknown]
  - Decreased appetite [Unknown]
  - Osteoporosis [Unknown]
